FAERS Safety Report 7321227-5 (Version None)
Quarter: 2011Q1

REPORT INFORMATION
  Report Type: 
  Country: None (occurrence: None)
  Receive Date: 20110228
  Receipt Date: 20110221
  Transmission Date: 20110831
  Serious: Yes (Hospitalization)
  Sender: FDA-Public Use
  Company Number: US-B.I. PHARMACEUTICALS,INC./RIDGEFIELD-2011-BP-00584BP

PATIENT
  Age: 88 Year
  Sex: Male

DRUGS (2)
  1. ASPIRIN [Concomitant]
     Dates: start: 20080403, end: 20110106
  2. PRADAXA [Suspect]
     Dosage: 150 MG
     Dates: end: 20110103

REACTIONS (4)
  - MELAENA [None]
  - EPISTAXIS [None]
  - GINGIVAL BLEEDING [None]
  - GASTROINTESTINAL HAEMORRHAGE [None]
